FAERS Safety Report 4630206-8 (Version None)
Quarter: 2005Q2

REPORT INFORMATION
  Report Type: 
  Country: None (occurrence: None)
  Receive Date: 20050408
  Receipt Date: 20050330
  Transmission Date: 20051028
  Serious: Yes (Other)
  Sender: FDA-Public Use
  Company Number: US-BOEHRINGER INGELHEIM PHARMACEUTICALS, INC.-2005-DE-01251GD

PATIENT
  Age: 85 Year
  Sex: Female

DRUGS (2)
  1. MORPHINE [Suspect]
     Indication: PAIN
  2. PROMETHAZINE [Suspect]
     Indication: ANTIEMETIC SUPPORTIVE CARE
     Route: 042

REACTIONS (1)
  - DELIRIUM [None]
